FAERS Safety Report 25871088 (Version 1)
Quarter: 2025Q4

REPORT INFORMATION
  Report Type: Spontaneous
  Country: US (occurrence: None)
  Receive Date: 20251001
  Receipt Date: 20251001
  Transmission Date: 20260118
  Serious: Yes (Hospitalization)
  Sender: FDA-CTU
  Company Number: None

PATIENT
  Sex: Female

DRUGS (1)
  1. REMICADE [Suspect]
     Active Substance: INFLIXIMAB
     Indication: Hidradenitis
     Dosage: OTHER STRENGTH : 100MG/VL;?OTHER FREQUENCY : EVERY 4 WEEKS;?
     Route: 042
     Dates: start: 20250522

REACTIONS (3)
  - Immune system disorder [None]
  - White blood cell count decreased [None]
  - Pneumonia [None]
